FAERS Safety Report 8591218-5 (Version None)
Quarter: 2012Q3

REPORT INFORMATION
  Report Type: 
  Country: None (occurrence: None)
  Receive Date: 20120813
  Receipt Date: 20120807
  Transmission Date: 20120928
  Serious: Yes (Hospitalization, Other)
  Sender: FDA-Public Use
  Company Number: CA-ROCHE-1007788

PATIENT
  Sex: Female

DRUGS (5)
  1. SPIRIVA [Concomitant]
  2. SINGULAIR [Concomitant]
  3. XOLAIR [Suspect]
     Indication: ASTHMA
     Route: 058
     Dates: start: 20110425
  4. XOLAIR [Suspect]
     Dates: start: 20120112
  5. FLUTICASONE PROPIONATE [Concomitant]

REACTIONS (11)
  - WEIGHT DECREASED [None]
  - ASTHMA [None]
  - BLOOD PRESSURE INCREASED [None]
  - NASOPHARYNGITIS [None]
  - DYSPNOEA [None]
  - PANIC ATTACK [None]
  - LUNG INFECTION [None]
  - WEIGHT INCREASED [None]
  - LOSS OF CONSCIOUSNESS [None]
  - ABDOMINAL DISTENSION [None]
  - MALAISE [None]
